FAERS Safety Report 11440060 (Version 1)
Quarter: 2015Q3

REPORT INFORMATION
  Report Type: Spontaneous
  Country: US (occurrence: US)
  Receive Date: 20150901
  Receipt Date: 20150901
  Transmission Date: 20151125
  Serious: No
  Sender: FDA-Public Use
  Company Number: US-ROCHE-1101147

PATIENT
  Sex: Female

DRUGS (2)
  1. PEGASYS [Suspect]
     Active Substance: PEGINTERFERON ALFA-2A
     Indication: HEPATITIS C
     Dosage: PRE FIELD SYRINGES
     Route: 058
     Dates: start: 20120328
  2. COPEGUS [Suspect]
     Active Substance: RIBAVIRIN
     Indication: HEPATITIS C
     Dosage: IN A DEVIDED DOSE 400/600
     Route: 065
     Dates: start: 20120328

REACTIONS (6)
  - Gout [Unknown]
  - Influenza like illness [Recovered/Resolved]
  - Myalgia [Recovered/Resolved]
  - Pain in extremity [Unknown]
  - Joint swelling [Unknown]
  - Musculoskeletal pain [Recovered/Resolved]
